FAERS Safety Report 12837854 (Version 2)
Quarter: 2016Q4

REPORT INFORMATION
  Report Type: Report from Study
  Country: US (occurrence: US)
  Receive Date: 20161012
  Receipt Date: 20161108
  Transmission Date: 20170207
  Serious: Yes (Death, Hospitalization, Other)
  Sender: FDA-Public Use
  Company Number: US-GILEAD-2016-0236167

PATIENT
  Age: 61 Year
  Sex: Female

DRUGS (3)
  1. TYVASO [Concomitant]
     Active Substance: TREPROSTINIL
  2. AMBRISENTAN [Suspect]
     Active Substance: AMBRISENTAN
     Indication: PULMONARY HYPERTENSION
     Dosage: 10 MG, QD
     Route: 065
     Dates: start: 20160303, end: 20161008
  3. AMBRISENTAN [Suspect]
     Active Substance: AMBRISENTAN
     Indication: ATRIAL TACHYCARDIA

REACTIONS (5)
  - Back pain [Not Recovered/Not Resolved]
  - Cardiac failure [Unknown]
  - Renal failure [Unknown]
  - Cardiomegaly [Not Recovered/Not Resolved]
  - Hereditary haemorrhagic telangiectasia [Fatal]
